FAERS Safety Report 23610968 (Version 2)
Quarter: 2024Q2

REPORT INFORMATION
  Report Type: Spontaneous
  Country: AT (occurrence: AT)
  Receive Date: 20240308
  Receipt Date: 20240423
  Transmission Date: 20240716
  Serious: Yes (Other)
  Sender: FDA-Public Use
  Company Number: AT-002147023-NVSC2024AT044098

PATIENT

DRUGS (11)
  1. RUXOLITINIB [Suspect]
     Active Substance: RUXOLITINIB
     Indication: Metachromatic leukodystrophy
     Dosage: 7.5 MG, BID
     Route: 048
     Dates: start: 20240205
  2. RUXOLITINIB [Suspect]
     Active Substance: RUXOLITINIB
     Dosage: UNK
     Route: 065
  3. RUXOLITINIB [Suspect]
     Active Substance: RUXOLITINIB
     Dosage: UNK (2 X 7.5 MG)
     Route: 065
  4. PREDNISOLONE [Concomitant]
     Active Substance: PREDNISOLONE
     Indication: Product used for unknown indication
     Dosage: UNK (1X5 MG)
     Route: 050
  5. VIROPEL [Concomitant]
     Indication: Product used for unknown indication
     Dosage: 500 MG (1X 500 MG)
     Route: 050
  6. MUTAN [Concomitant]
     Indication: Product used for unknown indication
     Dosage: 30 MG (1 X 30 MG)
     Route: 050
  7. NEXIUM [Concomitant]
     Active Substance: ESOMEPRAZOLE MAGNESIUM
     Indication: Product used for unknown indication
     Dosage: 20 MG (1 X 20 MG)
     Route: 050
  8. CHOLECALCIFEROL [Concomitant]
     Active Substance: CHOLECALCIFEROL
     Indication: Product used for unknown indication
     Dosage: 40 UNK, QW (1 X 40)
     Route: 036
  9. SULFAMETHOXAZOLE\TRIMETHOPRIM [Concomitant]
     Active Substance: SULFAMETHOXAZOLE\TRIMETHOPRIM
     Indication: Product used for unknown indication
     Dosage: 160 MG (MONDAYS, WEDNESDAYS, FRIDAYS)
     Route: 050
  10. AMLODIPINE [Concomitant]
     Active Substance: AMLODIPINE BESYLATE
     Indication: Product used for unknown indication
     Dosage: 7.5 MG (1 X 7.5 MG)
     Route: 050
  11. AMBISOME [Concomitant]
     Active Substance: AMPHOTERICIN B
     Indication: Product used for unknown indication
     Dosage: 3 MG/KG, Q2W
     Route: 042

REACTIONS (5)
  - Graft versus host disease [Recovered/Resolved]
  - Off label use [Unknown]
  - Thrombotic microangiopathy [Recovered/Resolved]
  - Transaminases abnormal [Unknown]
  - Thrombocytopenia [Recovering/Resolving]

NARRATIVE: CASE EVENT DATE: 20240117
